FAERS Safety Report 5565775-7 (Version None)
Quarter: 2007Q4

REPORT INFORMATION
  Report Type: 
  Country: None (occurrence: None)
  Receive Date: 20071213
  Receipt Date: 20071127
  Transmission Date: 20080405
  Serious: Yes (Death, Life-Threatening, Hospitalization, Other)
  Sender: FDA-Public Use
  Company Number: PAR_01810_2007

PATIENT
  Age: 12 Year
  Sex: Male
  Weight: 68.0396 kg

DRUGS (21)
  1. IBUPROFEN [Suspect]
     Indication: DRUG USE FOR UNKNOWN INDICATION
     Dosage: DF
  2. ALBUTEROL [Suspect]
     Indication: ASTHMA
     Dosage: DF
     Dates: start: 19960901, end: 19970412
  3. PROVENTIL [Suspect]
     Indication: ASTHMA
     Dosage: DF RESPIRATORY (INHALATION))
     Route: 055
     Dates: start: 19970401, end: 19970401
  4. SOLU-MEDROL [Suspect]
     Indication: ASTHMA
     Dosage: DF
     Dates: start: 19970101, end: 19970101
  5. TERBUTALINE SULFATE [Suspect]
     Indication: DRUG USE FOR UNKNOWN INDICATION
     Dosage: DF INTRAVENOUS DRIP), (1 UG/KG PER MINUTE FOR 0 MONTHS INTRABVENOUS DRIP)
     Route: 041
     Dates: start: 19970401, end: 19970401
  6. TERBUTALINE SULFATE [Suspect]
     Indication: DRUG USE FOR UNKNOWN INDICATION
     Dosage: DF INTRAVENOUS DRIP), (1 UG/KG PER MINUTE FOR 0 MONTHS INTRABVENOUS DRIP)
     Route: 041
     Dates: end: 19970419
  7. LASIX [Suspect]
     Indication: DRUG USE FOR UNKNOWN INDICATION
     Dosage: DF
  8. FENTANYL [Suspect]
     Indication: DRUG USE FOR UNKNOWN INDICATION
     Dosage: DF
  9. DIAMOX [Suspect]
     Indication: DRUG USE FOR UNKNOWN INDICATION
     Dosage: DF
  10. OXACILLIN [Concomitant]
  11. CEFTAZIDIME [Concomitant]
  12. METHYLPREDNISOLONE 16MG TAB [Concomitant]
  13. ATROVENT [Concomitant]
  14. EPINEPHRINE [Concomitant]
  15. DOPAMINE HCL [Concomitant]
  16. DOBUTAMINE HCL [Concomitant]
  17. RANITIDINE HCL [Concomitant]
  18. SUCRALFATE [Concomitant]
  19. AZMACORT [Concomitant]
  20. PREDNISONE [Concomitant]
  21. NASACORT [Concomitant]

REACTIONS (41)
  - ACUTE RESPIRATORY DISTRESS SYNDROME [None]
  - ASTHMA [None]
  - BLOOD BILIRUBIN INCREASED [None]
  - BLOOD CALCIUM DECREASED [None]
  - BLOOD MAGNESIUM INCREASED [None]
  - CARDIOGENIC SHOCK [None]
  - COLON GANGRENE [None]
  - CONDITION AGGRAVATED [None]
  - DIARRHOEA [None]
  - DISSEMINATED INTRAVASCULAR COAGULATION [None]
  - DRUG INEFFECTIVE [None]
  - DUODENAL ULCER [None]
  - EROSIVE DUODENITIS [None]
  - GASTROINTESTINAL NECROSIS [None]
  - HEPATIC FAILURE [None]
  - HEPATIC STEATOSIS [None]
  - HYPOTENSION [None]
  - ILEUS PARALYTIC [None]
  - INFLUENZA LIKE ILLNESS [None]
  - LACTIC ACIDOSIS [None]
  - MULTI-ORGAN FAILURE [None]
  - NECROSIS ISCHAEMIC [None]
  - OVERDOSE [None]
  - PERITONEAL HAEMORRHAGE [None]
  - PHARMACEUTICAL PRODUCT COMPLAINT [None]
  - PULMONARY HAEMORRHAGE [None]
  - RENAL FAILURE [None]
  - RENAL TUBULAR NECROSIS [None]
  - RESPIRATORY FAILURE [None]
  - RETROPERITONEAL HAEMORRHAGE [None]
  - SEPSIS SYNDROME [None]
  - SEPTIC SHOCK [None]
  - SINUSITIS [None]
  - SOMNOLENCE [None]
  - STATUS ASTHMATICUS [None]
  - THERAPEUTIC RESPONSE UNEXPECTED WITH DRUG SUBSTITUTION [None]
  - THROMBOSIS [None]
  - THROMBOSIS MESENTERIC VESSEL [None]
  - UPPER GASTROINTESTINAL HAEMORRHAGE [None]
  - UPPER RESPIRATORY TRACT INFECTION [None]
  - VICTIM OF CHILD ABUSE [None]
